FAERS Safety Report 17720245 (Version 4)
Quarter: 2021Q2

REPORT INFORMATION
  Report Type: Spontaneous
  Country: US (occurrence: US)
  Receive Date: 20200428
  Receipt Date: 20210407
  Transmission Date: 20210716
  Serious: Yes (Death, Hospitalization, Other)
  Sender: FDA-Public Use
  Company Number: US-TEVA-2020-US-1226785

PATIENT
  Age: 61 Year
  Sex: Male
  Weight: 98.5 kg

DRUGS (27)
  1. VALSARTAN/HYDROCHLOROTHIAZIDE ACTAVIS [Suspect]
     Active Substance: HYDROCHLOROTHIAZIDE\VALSARTAN
     Indication: HYPERTENSION
     Dosage: DOSAGE: 320/25MG
     Route: 065
     Dates: start: 20130409, end: 20150716
  2. VALSARTAN/HYDROCHLOROTHIAZIDE QUALITEST [Suspect]
     Active Substance: HYDROCHLOROTHIAZIDE\VALSARTAN
     Indication: HYPERTENSION
     Dosage: DOSAGE : 320/25MG
     Route: 065
     Dates: start: 20150416, end: 20150815
  3. VOLTAREN [Concomitant]
     Active Substance: DICLOFENAC SODIUM
     Indication: PAIN
     Dosage: 75MG TWICE A DAY
     Route: 048
     Dates: start: 20150905, end: 20191024
  4. GLUCOPHAGE [Concomitant]
     Active Substance: METFORMIN HYDROCHLORIDE
     Dosage: 500 MG DAILY WITH BREAKFAST
     Route: 048
  5. GABAPENTIN. [Concomitant]
     Active Substance: GABAPENTIN
     Indication: PAIN
     Dosage: 300 MILLIGRAM DAILY;
     Dates: start: 20130924, end: 20191024
  6. VALSARTAN/HYDROCHLOROTHIAZIDE MACLEODS [Suspect]
     Active Substance: HYDROCHLOROTHIAZIDE\VALSARTAN
     Dosage: DOSAGE : 320/25MG
     Route: 065
     Dates: start: 20160309, end: 20160408
  7. VALSARTAN/HYDROCHLOROTHIAZIDE MACLEODS [Suspect]
     Active Substance: HYDROCHLOROTHIAZIDE\VALSARTAN
     Dosage: DOSAGE : 320/25MG
     Route: 065
     Dates: start: 20160816, end: 20161015
  8. PRILOSEC [Concomitant]
     Active Substance: OMEPRAZOLE MAGNESIUM
     Dosage: 20 MILLIGRAM DAILY;
     Route: 048
  9. PROVENTIL HFA,VENTOLIN HFA [Concomitant]
     Dosage: 90 MCG IN PM AS NEEDED
     Route: 045
  10. VALSARTAN/HYDROCHLOROTHIAZIDE SANDOZ [Suspect]
     Active Substance: HYDROCHLOROTHIAZIDE\VALSARTAN
     Indication: HYPERTENSION
     Dosage: DOSAGE : 320/25MG
     Route: 065
     Dates: start: 20130204, end: 20130405
  11. CIPRO [Concomitant]
     Active Substance: CIPROFLOXACIN HYDROCHLORIDE
     Dosage: 500MG TWICE A DAY
     Route: 048
  12. ROXICODONE [Concomitant]
     Active Substance: OXYCODONE HYDROCHLORIDE
     Indication: PAIN
     Dosage: 5MG ONCE EVERY 4 HOURS
     Route: 048
  13. REMERON [Concomitant]
     Active Substance: MIRTAZAPINE
     Dosage: 15 MG, TAKE 1?2 TABLETS NIGHTLY
     Route: 048
  14. METFORMIN [Concomitant]
     Active Substance: METFORMIN HYDROCHLORIDE
     Indication: DIABETES MELLITUS
     Dosage: 500 MILLIGRAM DAILY;
     Dates: start: 20150202, end: 20191024
  15. VALSARTAN/HYDROCHLOROTHIAZIDE MACLEODS [Suspect]
     Active Substance: HYDROCHLOROTHIAZIDE\VALSARTAN
     Indication: HYPERTENSION
     Dosage: DOSAGE : 320/25MG
     Route: 065
     Dates: start: 20150824, end: 20151016
  16. ALBUTEROL. [Concomitant]
     Active Substance: ALBUTEROL
     Indication: BRONCHOSPASM
     Dosage: 90 MILLIGRAM DAILY;
     Dates: start: 20130204, end: 20191024
  17. VALSARTAN/HYDROCHLOROTHIAZIDE ACTAVIS [Suspect]
     Active Substance: HYDROCHLOROTHIAZIDE\VALSARTAN
     Dosage: DOSAGE: 320/25MG
     Route: 065
     Dates: start: 20160617, end: 20160717
  18. VALSARTAN/HYDROCHLOROTHIAZIDE MACLEODS [Suspect]
     Active Substance: HYDROCHLOROTHIAZIDE\VALSARTAN
     Dosage: DOSAGE : 80/12.5MG
     Route: 065
     Dates: start: 20160416, end: 20160515
  19. NEURONTIN [Concomitant]
     Active Substance: GABAPENTIN
     Dosage: 300MG AS NEEDED
     Route: 048
  20. VALSARTAN/HYDROCHLOROTHIAZIDE ACTAVIS [Suspect]
     Active Substance: HYDROCHLOROTHIAZIDE\VALSARTAN
     Dosage: DOSAGE: 320/25MG
     Route: 065
     Dates: start: 20160416, end: 20160516
  21. VALSARTAN/HYDROCHLOROTHIAZIDE MACLEODS [Suspect]
     Active Substance: HYDROCHLOROTHIAZIDE\VALSARTAN
     Dosage: DOSAGE : 80/12.5MG
     Route: 065
     Dates: start: 20160816, end: 20161015
  22. ZOFRAN [Concomitant]
     Active Substance: ONDANSETRON HYDROCHLORIDE
     Indication: NAUSEA
     Dosage: 8 MG ONCE EVERY 12 HOURS
     Route: 048
  23. VALSARTAN/HYDROCHLOROTHIAZIDE ACTAVIS [Suspect]
     Active Substance: HYDROCHLOROTHIAZIDE\VALSARTAN
     Dosage: DOSAGE: 320/25MG
     Route: 065
     Dates: start: 20151017, end: 20151116
  24. VALSARTAN/HYDROCHLOROTHIAZIDE ALEMBIC [Suspect]
     Active Substance: HYDROCHLOROTHIAZIDE\VALSARTAN
     Indication: HYPERTENSION
     Dosage: DOSAGE : 320/25MG
     Route: 065
     Dates: start: 20170221, end: 20170323
  25. DIOVAN HCT [Suspect]
     Active Substance: HYDROCHLOROTHIAZIDE\VALSARTAN
     Indication: HYPERTENSION
     Dosage: DOSAGE : 320/25 MG DAILY
     Route: 048
     Dates: start: 20120905, end: 20191024
  26. XANAX [Concomitant]
     Active Substance: ALPRAZOLAM
     Dosage: 0.5MG
     Route: 048
  27. COMPAZINE [Concomitant]
     Active Substance: PROCHLORPERAZINE MALEATE
     Indication: NAUSEA
     Dosage: 10MG EVERY 6 HOURS AS NEEDED
     Route: 048

REACTIONS (2)
  - Hepatocellular carcinoma [Fatal]
  - Cardiac arrest [Fatal]
